FAERS Safety Report 10018366 (Version 2)
Quarter: 2014Q2

REPORT INFORMATION
  Report Type: Spontaneous
  Country: DE (occurrence: DE)
  Receive Date: 20140318
  Receipt Date: 20140422
  Transmission Date: 20141212
  Serious: Yes (Other)
  Sender: FDA-Public Use
  Company Number: DE-PFIZER INC-2014069783

PATIENT
  Age: 67 Year
  Sex: Female

DRUGS (1)
  1. XALATAN [Suspect]
     Dosage: UNK

REACTIONS (5)
  - Hypersensitivity [Unknown]
  - Swelling face [Unknown]
  - Pharyngeal oedema [Unknown]
  - Blood pressure increased [Unknown]
  - Product formulation issue [Unknown]
